FAERS Safety Report 22126622 (Version 1)
Quarter: 2023Q1

REPORT INFORMATION
  Report Type: Spontaneous
  Country: US (occurrence: None)
  Receive Date: 20230322
  Receipt Date: 20230322
  Transmission Date: 20230418
  Serious: No
  Sender: FDA-Public Use
  Company Number: None

PATIENT
  Age: 8 Week
  Sex: Female

DRUGS (1)
  1. OMEPRAZOLE [Suspect]
     Active Substance: OMEPRAZOLE

REACTIONS (5)
  - Wrong product administered [None]
  - Incorrect route of product administration [None]
  - Agitation [None]
  - Feeling abnormal [None]
  - Vomiting [None]
